FAERS Safety Report 21026452 (Version 1)
Quarter: 2022Q2

REPORT INFORMATION
  Report Type: Spontaneous
  Country: US (occurrence: None)
  Receive Date: 20220629
  Receipt Date: 20220629
  Transmission Date: 20220721
  Serious: Yes (Death)
  Sender: FDA-Public Use
  Company Number: None

PATIENT
  Sex: Male

DRUGS (2)
  1. OCTREOTIDE [Suspect]
     Active Substance: OCTREOTIDE
     Indication: Pyrexia
     Dosage: OTHER QUANTITY : 100 MCG/ML;?OTHER FREQUENCY : TID FOR 10 DAYS;?OTHER ROUTE : INJECTION;?
     Route: 050
     Dates: start: 20220405
  2. OCTREOTIDE [Suspect]
     Active Substance: OCTREOTIDE
     Dosage: OTHER FREQUENCY : TID FOR 10 DAYS;?
     Route: 058

REACTIONS (1)
  - Death [None]
